FAERS Safety Report 9958685 (Version 2)
Quarter: 2014Q1

REPORT INFORMATION
  Report Type: Spontaneous
  Country: US (occurrence: None)
  Receive Date: 20140227
  Receipt Date: 20140310
  Transmission Date: 20141002
  Serious: Yes (Other)
  Sender: FDA-Public Use
  Company Number: 2014P1001481

PATIENT
  Age: 56 Year
  Sex: Female
  Weight: 79.38 kg

DRUGS (8)
  1. FENTANYL [Suspect]
     Indication: DENTAL IMPLANTATION
     Route: 042
     Dates: start: 20140131, end: 20140131
  2. MIDAZOLAM [Suspect]
     Indication: DENTAL IMPLANTATION
     Route: 042
     Dates: start: 20140131, end: 20140131
  3. KETAMINE [Suspect]
     Indication: DENTAL IMPLANTATION
     Route: 042
     Dates: start: 20140131, end: 20140131
  4. PENICILLIN (PENICILLIN) [Concomitant]
  5. PROPOFOL (PROPOFOL) [Concomitant]
  6. DECADRON (DECADRON) [Concomitant]
  7. LIDOCAINE WITH  EPINEPHRINE [Concomitant]
  8. MARCAINE WITH EPINEPHRINE [Concomitant]

REACTIONS (1)
  - Respiratory arrest [None]
